FAERS Safety Report 8570610-9 (Version None)
Quarter: 2012Q3

REPORT INFORMATION
  Report Type: 
  Country: None (occurrence: None)
  Receive Date: 20120804
  Receipt Date: 20120723
  Transmission Date: 20120928
  Serious: Yes (Other)
  Sender: FDA-Public Use
  Company Number: US-009507513-1206USA01148

PATIENT

DRUGS (6)
  1. ZOCOR [Suspect]
     Indication: BLOOD CHOLESTEROL
     Route: 048
     Dates: start: 20100101
  2. LURASIDONE HYDROCHLORIDE [Suspect]
     Indication: SCHIZOPHRENIA
     Dates: start: 20120301, end: 20120301
  3. NUTRASWEET [Suspect]
  4. NAVANE [Concomitant]
  5. INVEGA [Suspect]
     Indication: BIPOLAR DISORDER
     Dosage: 6 MG, UNK
     Route: 048
     Dates: start: 20070101, end: 20120301
  6. INVEGA [Suspect]
     Indication: SCHIZOPHRENIA
     Dosage: 10.5 MG, UNK
     Route: 048
     Dates: start: 20120301

REACTIONS (10)
  - PAIN [None]
  - MOOD SWINGS [None]
  - PRODUCT QUALITY ISSUE [None]
  - DISTURBANCE IN ATTENTION [None]
  - BLOOD CHOLESTEROL INCREASED [None]
  - MYALGIA [None]
  - ANAPHYLACTIC SHOCK [None]
  - HYPOPITUITARISM [None]
  - HYPOTHALAMO-PITUITARY DISORDER [None]
  - WEIGHT DECREASED [None]
